FAERS Safety Report 13158143 (Version 1)
Quarter: 2017Q1

REPORT INFORMATION
  Report Type: Spontaneous
  Country: JP (occurrence: JP)
  Receive Date: 20170127
  Receipt Date: 20170127
  Transmission Date: 20170428
  Serious: Yes (Hospitalization)
  Sender: FDA-Public Use
  Company Number: JP-AMGEN-JPNSP2017013671

PATIENT
  Age: 73 Year
  Sex: Male

DRUGS (3)
  1. REGPARA [Suspect]
     Active Substance: CINACALCET HYDROCHLORIDE
     Dosage: 12.5 MG, QD
     Route: 048
     Dates: start: 20160920, end: 20161003
  2. REGPARA [Suspect]
     Active Substance: CINACALCET HYDROCHLORIDE
     Indication: PRODUCT USED FOR UNKNOWN INDICATION
     Dosage: 25 MG, QD
     Route: 048
     Dates: start: 20160329, end: 20160718
  3. REGPARA [Suspect]
     Active Substance: CINACALCET HYDROCHLORIDE
     Dosage: 12.5 MG, QD
     Route: 048
     Dates: start: 20160719, end: 20160905

REACTIONS (21)
  - Shunt occlusion [Recovered/Resolved]
  - Procedural hypotension [Recovered/Resolved]
  - Shunt stenosis [Recovered/Resolved]
  - Hepatic function abnormal [Recovered/Resolved]
  - Procedural hypotension [Recovered/Resolved]
  - Contusion [Recovered/Resolved]
  - Procedural hypotension [Recovered/Resolved]
  - Procedural hypotension [Recovered/Resolved]
  - Shunt stenosis [Recovered/Resolved]
  - Cholecystitis [Recovered/Resolved]
  - Procedural hypotension [Recovered/Resolved]
  - Procedural hypotension [Recovered/Resolved]
  - Postoperative fever [Recovered/Resolved]
  - Procedural hypotension [Recovered/Resolved]
  - Malaise [Recovered/Resolved]
  - Nausea [Recovered/Resolved]
  - Procedural hypotension [Recovered/Resolved]
  - Procedural hypotension [Recovered/Resolved]
  - Procedural hypotension [Recovered/Resolved]
  - Procedural hypotension [Recovered/Resolved]
  - Procedural hypotension [Recovered/Resolved]

NARRATIVE: CASE EVENT DATE: 20160405
